FAERS Safety Report 4521071-8 (Version None)
Quarter: 2004Q4

REPORT INFORMATION
  Report Type: 
  Country: None (occurrence: None)
  Receive Date: 20041206
  Receipt Date: 20041123
  Transmission Date: 20050328
  Serious: Yes (Hospitalization)
  Sender: FDA-Public Use
  Company Number: RENA-11213

PATIENT
  Age: 71 Year
  Sex: Male
  Weight: 72 kg

DRUGS (3)
  1. RENAGEL [Suspect]
     Indication: HYPERPHOSPHATAEMIA
     Dosage: 1.6 G TID PO
     Route: 048
     Dates: start: 20030501, end: 20040224
  2. CALCIUM CITRATE [Concomitant]
  3. ALUMINUM HYDROXIDE GEL [Concomitant]

REACTIONS (5)
  - ASPIRATION [None]
  - DUODENAL OBSTRUCTION [None]
  - GASTRIC OUTLET OBSTRUCTION [None]
  - PNEUMONIA [None]
  - PNEUMONIA ASPIRATION [None]
